FAERS Safety Report 7819925-X (Version None)
Quarter: 2011Q4

REPORT INFORMATION
  Report Type: 
  Country: None (occurrence: None)
  Receive Date: 20111018
  Receipt Date: 20101102
  Transmission Date: 20120403
  Serious: No
  Sender: FDA-Public Use
  Company Number: US-ASTRAZENECA-2010SE49124

PATIENT
  Age: 18190 Day
  Sex: Female
  Weight: 49 kg

DRUGS (4)
  1. SYMBICORT [Suspect]
     Dosage: 160/4.5 2 PUFFS
     Route: 055
  2. FEXOFENADINE HCL [Concomitant]
  3. PROAIR HFA [Suspect]
  4. XANAX [Concomitant]

REACTIONS (3)
  - PANIC ATTACK [None]
  - CHEST DISCOMFORT [None]
  - CHOKING SENSATION [None]
